FAERS Safety Report 18523107 (Version 5)
Quarter: 2021Q2

REPORT INFORMATION
  Report Type: Report from Study
  Country: US (occurrence: US)
  Receive Date: 20201119
  Receipt Date: 20210416
  Transmission Date: 20210717
  Serious: No
  Sender: FDA-Public Use
  Company Number: NVSC2020US300978

PATIENT
  Age: 61 Year
  Sex: Female

DRUGS (2)
  1. COSENTYX [Suspect]
     Active Substance: SECUKINUMAB
     Indication: PSORIASIS
     Dosage: (BENEATH THE SKIN, USUALLY VIA INJECTION)300 MG, QMO
     Route: 058
     Dates: start: 202011
  2. COSENTYX [Suspect]
     Active Substance: SECUKINUMAB
     Indication: PSORIATIC ARTHROPATHY
     Dosage: (BENEATH THE SKIN, USUALLY VIA INJECTION)300 MG, QW
     Route: 058
     Dates: start: 202010

REACTIONS (3)
  - Drug ineffective [Unknown]
  - Liquid product physical issue [Unknown]
  - Injection site pain [Unknown]

NARRATIVE: CASE EVENT DATE: 202010
